FAERS Safety Report 10723988 (Version 1)
Quarter: 2015Q1

REPORT INFORMATION
  Report Type: Spontaneous
  Country: US (occurrence: None)
  Receive Date: 20150116
  Receipt Date: 20150116
  Transmission Date: 20150721
  Serious: Yes (Hospitalization)
  Sender: FDA-Public Use
  Company Number: None

PATIENT
  Age: 79 Year
  Sex: Male
  Weight: 81.65 kg

DRUGS (1)
  1. CEFEPIME [Suspect]
     Active Substance: CEFEPIME\CEFEPIME HYDROCHLORIDE
     Indication: CYSTITIS BACTERIAL
     Dates: start: 20141103, end: 20141106

REACTIONS (6)
  - Visual acuity reduced [None]
  - General physical health deterioration [None]
  - Eyelid function disorder [None]
  - Dysarthria [None]
  - Dysphagia [None]
  - Neurotoxicity [None]

NARRATIVE: CASE EVENT DATE: 20141103
